FAERS Safety Report 18864345 (Version 1)
Quarter: 2021Q1

REPORT INFORMATION
  Report Type: Spontaneous
  Country: FR (occurrence: FR)
  Receive Date: 20210209
  Receipt Date: 20210209
  Transmission Date: 20210420
  Serious: Yes (Disabling)
  Sender: FDA-Public Use
  Company Number: FR-TEVA-2021-FR-1877492

PATIENT
  Age: 76 Year
  Sex: Male
  Weight: 80 kg

DRUGS (4)
  1. TRELEGY ELLIPTA [Concomitant]
     Active Substance: FLUTICASONE FUROATE\UMECLIDINIUM BROMIDE\VILANTEROL TRIFENATATE
     Indication: CHRONIC OBSTRUCTIVE PULMONARY DISEASE
     Dosage: 2 DOSAGE FORMS
     Route: 055
  2. BISOPROLOL (FUMARATE ACIDE DE) [Concomitant]
     Active Substance: BISOPROLOL FUMARATE
     Indication: ATRIAL FIBRILLATION
     Dosage: 2.5 MG
     Route: 011
  3. ELIQUIS [Concomitant]
     Active Substance: APIXABAN
     Indication: THROMBOSIS PROPHYLAXIS
     Dosage: 5 MG
     Route: 048
  4. AMIODARONE [Suspect]
     Active Substance: AMIODARONE
     Indication: ATRIAL FIBRILLATION
     Dosage: 200 MG
     Route: 048
     Dates: start: 202003, end: 20210107

REACTIONS (3)
  - Papilloedema [Recovering/Resolving]
  - Visual acuity reduced [Recovering/Resolving]
  - Optic ischaemic neuropathy [Recovering/Resolving]

NARRATIVE: CASE EVENT DATE: 20201223
